FAERS Safety Report 6720864-6 (Version None)
Quarter: 2010Q2

REPORT INFORMATION
  Report Type: 
  Country: None (occurrence: None)
  Receive Date: 20100512
  Receipt Date: 20100504
  Transmission Date: 20101027
  Serious: No
  Sender: FDA-Public Use
  Company Number: US-BIOGENIDEC-2010BI015419

PATIENT
  Age: 52 Year
  Sex: Male

DRUGS (1)
  1. TYSABRI [Suspect]
     Indication: MULTIPLE SCLEROSIS
     Route: 042
     Dates: start: 20070101, end: 20100401

REACTIONS (4)
  - BALANCE DISORDER [None]
  - DRUG EFFECT DECREASED [None]
  - GAIT DISTURBANCE [None]
  - NEUROPATHY PERIPHERAL [None]
